FAERS Safety Report 23624390 (Version 1)
Quarter: 2024Q1

REPORT INFORMATION
  Report Type: Report from Study
  Country: US (occurrence: US)
  Receive Date: 20240312
  Receipt Date: 20240312
  Transmission Date: 20240410
  Serious: Yes (Other)
  Sender: FDA-Public Use
  Company Number: US-002147023-NVSC2024US040942

PATIENT
  Sex: Female

DRUGS (1)
  1. KISQALI [Suspect]
     Active Substance: RIBOCICLIB
     Indication: Product used for unknown indication
     Dosage: UNK
     Route: 065

REACTIONS (8)
  - Foreign body in throat [Recovered/Resolved]
  - Breast pain [Unknown]
  - Abdominal pain [Unknown]
  - Dry skin [Unknown]
  - Body temperature increased [Unknown]
  - Alopecia [Unknown]
  - Back pain [Unknown]
  - Headache [Recovered/Resolved]
